FAERS Safety Report 4432752-9 (Version None)
Quarter: 2004Q3

REPORT INFORMATION
  Report Type: 
  Country: None (occurrence: None)
  Receive Date: 20040820
  Receipt Date: 20040803
  Transmission Date: 20050211
  Serious: Yes (Hospitalization, Other)
  Sender: FDA-Public Use
  Company Number: 2004049867

PATIENT
  Sex: Female

DRUGS (1)
  1. VIAGRA [Suspect]
     Indication: PULMONARY HYPERTENSION
     Dosage: 150 MG (50 MG, 3 IN 1 D) ORAL
     Route: 048
     Dates: start: 20030801

REACTIONS (2)
  - CARDIAC OPERATION [None]
  - MEDICATION ERROR [None]
